FAERS Safety Report 12344505 (Version 2)
Quarter: 2016Q3

REPORT INFORMATION
  Report Type: Spontaneous
  Country: US (occurrence: US)
  Receive Date: 20160507
  Receipt Date: 20160718
  Transmission Date: 20161109
  Serious: Yes (Life-Threatening, Hospitalization)
  Sender: FDA-Public Use
  Company Number: US-JNJFOC-20160404401

PATIENT
  Age: 54 Year
  Sex: Female

DRUGS (2)
  1. XARELTO [Suspect]
     Active Substance: RIVAROXABAN
     Indication: DEEP VEIN THROMBOSIS
     Dosage: VARYING DOSES OF 15 TO 20 MG
     Route: 048
     Dates: start: 20140424, end: 20140618
  2. XARELTO [Suspect]
     Active Substance: RIVAROXABAN
     Indication: PULMONARY EMBOLISM
     Dosage: VARYING DOSES OF 15 TO 20 MG
     Route: 048
     Dates: start: 20140424, end: 20140618

REACTIONS (4)
  - Haemorrhage [Unknown]
  - Haemorrhagic anaemia [Unknown]
  - Perforated ulcer [Recovering/Resolving]
  - Urosepsis [Unknown]

NARRATIVE: CASE EVENT DATE: 201406
